FAERS Safety Report 12666559 (Version 1)
Quarter: 2016Q3

REPORT INFORMATION
  Report Type: Report from Study
  Country: JP (occurrence: JP)
  Receive Date: 20160819
  Receipt Date: 20160819
  Transmission Date: 20161109
  Serious: Yes (Death, Other)
  Sender: FDA-Public Use
  Company Number: JP-CIPLA LTD.-2016JP17213

PATIENT

DRUGS (3)
  1. NIMOTUZUMAB [Suspect]
     Active Substance: NIMOTUZUMAB
     Indication: METASTATIC GASTRIC CANCER
     Dosage: 400 MG, DILUTED IN NORMAL SALINE TO A TOTAL VOLUME OF 250 ML WAS ADMINISTERED ONCE WEEKLY
     Route: 042
  2. FLUOROURACIL. [Suspect]
     Active Substance: FLUOROURACIL
     Indication: GASTRIC CANCER
     Dosage: UNK
     Route: 065
  3. IRINOTECAN [Suspect]
     Active Substance: IRINOTECAN
     Indication: METASTATIC GASTRIC CANCER
     Dosage: 150 MG/M2, ADMINISTERED EVERY 2 WEEKS
     Route: 065

REACTIONS (2)
  - Pneumonia [Fatal]
  - Disease progression [Unknown]
